FAERS Safety Report 7957537-8 (Version None)
Quarter: 2011Q4

REPORT INFORMATION
  Report Type: 
  Country: None (occurrence: None)
  Receive Date: 20111205
  Receipt Date: 20030206
  Transmission Date: 20120403
  Serious: Yes (Life-Threatening)
  Sender: FDA-Public Use
  Company Number: GB-GLAXOSMITHKLINE-B0055522A

PATIENT
  Sex: Male
  Weight: 27 kg

DRUGS (7)
  1. SALMETEROL XINAFOATE [Suspect]
     Indication: ASTHMA
     Dosage: 50UG TWICE PER DAY
     Route: 055
     Dates: start: 19980317, end: 19980317
  2. TOFENACIN [Concomitant]
     Indication: ASTHMA
     Dosage: 1U THREE TIMES PER DAY
     Route: 048
  3. ALBUTEROL SULFATE AUTOHALER [Concomitant]
     Indication: ASTHMA
     Dosage: 2U FOUR TIMES PER DAY
     Route: 055
  4. PREDNISOLONE [Concomitant]
     Indication: ASTHMA
     Dosage: 20MG PER DAY
     Route: 048
  5. BECLOMETHASONE DIPROPIONATE [Concomitant]
     Indication: ASTHMA
     Dosage: 100UG TWICE PER DAY
     Route: 055
  6. IPRATROPIUM BROMIDE [Concomitant]
     Indication: ASTHMA
     Dosage: 2U FOUR TIMES PER DAY
     Route: 055
  7. FLUTICASONE PROPIONATE [Suspect]
     Indication: ASTHMA
     Dosage: 50UG TWICE PER DAY
     Route: 055
     Dates: start: 19980317, end: 19980317

REACTIONS (6)
  - PRURITUS [None]
  - ABDOMINAL PAIN [None]
  - ANAPHYLACTIC REACTION [None]
  - BRONCHOSPASM [None]
  - SKIN IRRITATION [None]
  - CYANOSIS CENTRAL [None]
